FAERS Safety Report 24777398 (Version 1)
Quarter: 2024Q4

REPORT INFORMATION
  Report Type: Spontaneous
  Country: CA (occurrence: CA)
  Receive Date: 20241226
  Receipt Date: 20241226
  Transmission Date: 20250115
  Serious: Yes (Hospitalization, Other)
  Sender: BOEHRINGER INGELHEIM
  Company Number: CA-Komodo Health-a23aa000004pLZZAA2

PATIENT
  Sex: Male

DRUGS (1)
  1. LINAGLIPTIN [Suspect]
     Active Substance: LINAGLIPTIN
     Indication: Type 2 diabetes mellitus
     Dates: start: 201812, end: 2019

REACTIONS (15)
  - Pancreatitis acute [Recovered/Resolved]
  - Infection [Recovered/Resolved]
  - Infection [Recovered/Resolved]
  - Sepsis [Recovered/Resolved]
  - Vomiting [Recovered/Resolved]
  - Feeding disorder [Recovered/Resolved]
  - Drain site complication [Recovered/Resolved]
  - Blood glucose increased [Unknown]
  - Nausea [Unknown]
  - Pyrexia [Unknown]
  - Illness [Unknown]
  - Scar [Recovered/Resolved]
  - Appetite disorder [Recovered/Resolved]
  - Gait inability [Unknown]
  - Taste disorder [Recovered/Resolved]

NARRATIVE: CASE EVENT DATE: 20180101
